FAERS Safety Report 10239603 (Version 2)
Quarter: 2014Q2

REPORT INFORMATION
  Report Type: Report from Study
  Country: US (occurrence: US)
  Receive Date: 20140616
  Receipt Date: 20140616
  Transmission Date: 20141212
  Serious: Yes (Hospitalization, Other)
  Sender: FDA-Public Use
  Company Number: US-ELI_LILLY_AND_COMPANY-US201306000963

PATIENT
  Age: 51 Year
  Sex: Female

DRUGS (12)
  1. DULOXETINE HYDROCHLORIDE [Suspect]
     Indication: DEPRESSION
     Dosage: 60 MG, QD
     Route: 065
  2. DULOXETINE HYDROCHLORIDE [Suspect]
     Indication: PAIN
     Dosage: 30 MG, UNKNOWN
     Route: 065
  3. DULOXETINE HYDROCHLORIDE [Suspect]
     Dosage: 60 MG, QD
     Route: 065
  4. DULOXETINE HYDROCHLORIDE [Suspect]
     Dosage: 90 MG, QD
     Route: 065
  5. DULOXETINE HYDROCHLORIDE [Suspect]
     Dosage: 60 MG, QD
     Route: 065
  6. JANUMET [Concomitant]
  7. METOPROLOL [Concomitant]
  8. CLONIDINE [Concomitant]
  9. LOSARTAN [Concomitant]
  10. NOVOLOG [Concomitant]
  11. LANTUS [Concomitant]
  12. TYLENOL                                 /SCH/ [Concomitant]

REACTIONS (21)
  - Hypertension [Unknown]
  - Post procedural infection [Unknown]
  - Endocarditis staphylococcal [Unknown]
  - Atrial fibrillation [Unknown]
  - Staphylococcal infection [Unknown]
  - Feeling abnormal [Unknown]
  - Tremor [Unknown]
  - Feeling jittery [Unknown]
  - Thinking abnormal [Unknown]
  - Somnolence [Unknown]
  - Temperature intolerance [Unknown]
  - Malaise [Unknown]
  - Abdominal discomfort [Unknown]
  - Nausea [Recovered/Resolved]
  - Dizziness [Recovered/Resolved]
  - Drug withdrawal syndrome [Recovered/Resolved]
  - Insomnia [Unknown]
  - Anxiety [Unknown]
  - Hyperhidrosis [Unknown]
  - Hyperhidrosis [Unknown]
  - Dizziness [Unknown]
